FAERS Safety Report 7194168-4 (Version None)
Quarter: 2010Q4

REPORT INFORMATION
  Report Type: 
  Country: None (occurrence: None)
  Receive Date: 20101223
  Receipt Date: 20101203
  Transmission Date: 20110411
  Serious: Yes (Hospitalization, Other)
  Sender: FDA-Public Use
  Company Number: US-BAYER-2010-006879

PATIENT
  Sex: Female
  Weight: 59 kg

DRUGS (6)
  1. YASMIN [Suspect]
     Indication: CONTRACEPTION
     Dosage: UNK
     Dates: start: 20071114, end: 20080701
  2. YASMIN [Suspect]
     Indication: PREMENSTRUAL SYNDROME
  3. OCELLA [Suspect]
     Indication: CONTRACEPTION
     Dosage: UNK
     Dates: start: 20080601, end: 20100101
  4. OCELLA [Suspect]
     Indication: PREMENSTRUAL SYNDROME
  5. LEVOTHYROXINE [Concomitant]
     Indication: THYROID DISORDER
     Dosage: 0.05 MG, UNK
     Route: 048
     Dates: start: 20071114, end: 20090109
  6. IBUPROFEN [Concomitant]
     Indication: INFLAMMATION
     Dosage: 600 MG, UNK
     Route: 048
     Dates: start: 20080912, end: 20091124

REACTIONS (10)
  - ABDOMINAL PAIN [None]
  - BILIARY DYSKINESIA [None]
  - CHEST PAIN [None]
  - COUGH [None]
  - DYSPNOEA [None]
  - HYPOKALAEMIA [None]
  - HYPOMAGNESAEMIA [None]
  - LUNG INFILTRATION [None]
  - NAUSEA [None]
  - VOMITING [None]
